FAERS Safety Report 13865859 (Version 1)
Quarter: 2017Q3

REPORT INFORMATION
  Report Type: Report from Study
  Country: IT (occurrence: IT)
  Receive Date: 20170814
  Receipt Date: 20170814
  Transmission Date: 20171127
  Serious: Yes (Hospitalization, Other)
  Sender: FDA-Public Use
  Company Number: IT-BAXTER-2017BAX026889

PATIENT
  Age: 68 Year
  Sex: Male
  Weight: 64 kg

DRUGS (33)
  1. SODIO CLORURO BAXTER S.P.A. 0,9% [Suspect]
     Active Substance: SODIUM CHLORIDE
     Dosage: 250 ML BAG, CYCLE 1 DAY 8, PREPARED WITH 20000 MG GEMCITABINE
     Route: 042
     Dates: start: 20170523
  2. TARGIN 5 [Concomitant]
     Indication: PRODUCT USED FOR UNKNOWN INDICATION
     Dosage: HOME THERAPY: AT 08:00 AND 20:00 (CLASS SSN: A)
     Route: 065
  3. ALDACTONE [Concomitant]
     Active Substance: SPIRONOLACTONE
     Indication: PRODUCT USED FOR UNKNOWN INDICATION
     Dosage: HOME THERAPY: HALF TABLET AT 14:00 (CLASS SSN: A)
     Route: 065
  4. DECADRON [Concomitant]
     Active Substance: DEXAMETHASONE
     Indication: NAUSEA
     Dosage: HOME THERAPY: FOR A MAXIMUM OF TWICE A DAY, (CLASS SSN: A)
     Route: 065
  5. RAMUCIRUMAB [Suspect]
     Active Substance: RAMUCIRUMAB
     Indication: PLEURAL MESOTHELIOMA
     Dosage: CYCLE 1, DAY 1 (PLACEBO)
     Route: 042
     Dates: start: 20170516, end: 20170516
  6. LASIX [Concomitant]
     Active Substance: FUROSEMIDE
     Indication: PRODUCT USED FOR UNKNOWN INDICATION
     Dosage: HOME THERAPY: AT 08:00 (CLASS SSN: A)
     Route: 065
  7. CLORFENAMINE [Concomitant]
     Indication: PRODUCT USED FOR UNKNOWN INDICATION
     Dosage: CYCLE 2
     Route: 042
  8. SODIO CLORURO BAXTER S.P.A. 0,9% [Suspect]
     Active Substance: SODIUM CHLORIDE
     Indication: MEDICATION DILUTION
     Dosage: 250 ML BAG, CYCLE 1 DAY 1, PREPARED WITH 20000 MG GEMCITABINE
     Route: 042
     Dates: start: 20170516
  9. RAMUCIRUMAB [Suspect]
     Active Substance: RAMUCIRUMAB
     Indication: EPITHELIOID MESOTHELIOMA
  10. PLASIL [Concomitant]
     Active Substance: METOCLOPRAMIDE HYDROCHLORIDE
     Indication: NAUSEA
     Route: 042
  11. PLASIL [Concomitant]
     Active Substance: METOCLOPRAMIDE HYDROCHLORIDE
     Dosage: HOME THERAPY: MAXIMUM OF THREE TIMES
     Route: 065
  12. CISPLATIN. [Concomitant]
     Active Substance: CISPLATIN
     Indication: NEOADJUVANT THERAPY
     Dosage: 6 CYCLES
     Route: 065
     Dates: start: 201609, end: 201701
  13. MOVICOL [Concomitant]
     Active Substance: POLYETHYLENE GLYCOL 3350\POTASSIUM CHLORIDE\SODIUM BICARBONATE\SODIUM CHLORIDE
     Indication: PRODUCT USED FOR UNKNOWN INDICATION
     Dosage: HOME THERAPY: AT 11:00, TO DILUTE IN 250 CC WATER WITH LIMON JUICE (CLASS SSC: C)
     Route: 065
  14. TARDYFER [Concomitant]
     Active Substance: FERROUS SULFATE
     Indication: PRODUCT USED FOR UNKNOWN INDICATION
     Dosage: HOME THERAPY: AT 16:00 (CLASS SSN: A)
     Route: 065
  15. GEMZAR [Suspect]
     Active Substance: GEMCITABINE HYDROCHLORIDE
     Indication: METASTASIS
     Dosage: CYCLE 1 DAY 8, PREPARED WITH 500 ML BAXTER BAG
     Route: 042
     Dates: start: 20170523
  16. OCTREOTIDE. [Concomitant]
     Active Substance: OCTREOTIDE
     Indication: PRODUCT USED FOR UNKNOWN INDICATION
     Dosage: ELASTOMER WITH MORPHINE-OCTREOTIDE-DEXAMETHASONE
     Route: 065
     Dates: start: 201705
  17. LANSOPRAZOLE. [Concomitant]
     Active Substance: LANSOPRAZOLE
     Indication: PRODUCT USED FOR UNKNOWN INDICATION
     Dosage: HOME THERAPY: AT 08:00, EMPTY STOMACH (CLASS SSN: A)
     Route: 065
  18. TACHIPIRINA [Concomitant]
     Active Substance: ACETAMINOPHEN
     Indication: PAIN
     Dosage: HOME THERAPY: MAXIMUM OF THREE TIMES PER DAY (CLASS SSN: C)
     Route: 065
  19. MEDROL [Concomitant]
     Active Substance: METHYLPREDNISOLONE
     Indication: PRODUCT USED FOR UNKNOWN INDICATION
     Dosage: HOME THERAPY: HALF TABLET AT 08:00 AND 14:00 (CLASS SSN: A)
     Route: 065
  20. METRONIDAZOLE. [Concomitant]
     Active Substance: METRONIDAZOLE
     Indication: PRODUCT USED FOR UNKNOWN INDICATION
     Route: 065
  21. MORPHINE [Concomitant]
     Active Substance: MORPHINE
     Indication: PRODUCT USED FOR UNKNOWN INDICATION
     Dosage: ELASTOMER WITH MORPHINE-OCTREOTIDE-DEXAMETHASONE
     Route: 065
     Dates: start: 201705
  22. CIPROFLOXACIN. [Concomitant]
     Active Substance: CIPROFLOXACIN
     Indication: PRODUCT USED FOR UNKNOWN INDICATION
     Dosage: IN FIRST AID TREATMENT
     Route: 042
     Dates: start: 201705
  23. GEMZAR [Suspect]
     Active Substance: GEMCITABINE HYDROCHLORIDE
     Indication: PLEURAL MESOTHELIOMA
     Dosage: CYCLE 1 DAY 1, PREPARED WITH 500 ML BAXTER BAG
     Route: 042
     Dates: start: 20170516
  24. DEXAMETHASONE. [Concomitant]
     Active Substance: DEXAMETHASONE
     Indication: PRODUCT USED FOR UNKNOWN INDICATION
     Dosage: ELASTOMER WITH MORPHINE-OCTREOTIDE-DEXAMETHASONE
     Route: 065
     Dates: start: 201705
  25. RAMUCIRUMAB [Suspect]
     Active Substance: RAMUCIRUMAB
     Indication: METASTASIS
     Dosage: CYCLE 1, DAY 8 (PLACEBO)
     Route: 042
     Dates: start: 20170523
  26. GEMZAR [Suspect]
     Active Substance: GEMCITABINE HYDROCHLORIDE
     Indication: EPITHELIOID MESOTHELIOMA
  27. LEVOPRAID [Concomitant]
     Active Substance: SULPIRIDE
     Indication: PRODUCT USED FOR UNKNOWN INDICATION
     Dosage: HOME THERAPY: AT 08:00, 11:00 AND 18:00 (CLASS SSN: C)
     Route: 065
  28. EPOETIN ZETA [Concomitant]
     Active Substance: ERYTHROPOIETIN
     Indication: PRODUCT USED FOR UNKNOWN INDICATION
     Dosage: HOME THERAPY: (DOSAGE FORM: 30,000 IU/0.75 ML SYRINGE) AT 18:00 FOR 7 DAYS, NEXT ADMINISTRATION ON 0
     Route: 058
  29. DEXAMETHASONE. [Concomitant]
     Active Substance: DEXAMETHASONE
     Route: 042
  30. FONDAPARINUX [Concomitant]
     Active Substance: FONDAPARINUX
     Indication: PRODUCT USED FOR UNKNOWN INDICATION
     Route: 065
  31. PLASIL [Concomitant]
     Active Substance: METOCLOPRAMIDE HYDROCHLORIDE
     Dosage: REDUCED DOSE
     Route: 042
     Dates: start: 201705
  32. SODIUM ENOXAPARIN [Concomitant]
     Active Substance: ENOXAPARIN SODIUM
     Indication: PRODUCT USED FOR UNKNOWN INDICATION
     Route: 058
  33. ALIMTA [Concomitant]
     Active Substance: PEMETREXED DISODIUM
     Indication: NEOADJUVANT THERAPY
     Dosage: 6 CYCLES
     Route: 065
     Dates: start: 201609, end: 201701

REACTIONS (2)
  - Pyrexia [Recovered/Resolved]
  - Injection site dermatitis [Recovered/Resolved]

NARRATIVE: CASE EVENT DATE: 20170623
